FAERS Safety Report 8838819 (Version 1)
Quarter: 2012Q4

REPORT INFORMATION
  Report Type: 
  Country: JP (occurrence: JP)
  Receive Date: 20121013
  Receipt Date: 20121013
  Transmission Date: 20130627
  Serious: Yes (Other)
  Sender: FDA-Public Use
  Company Number: JP-ROXANE LABORATORIES, INC.-2012-RO-01988RO

PATIENT
  Age: 80 Year
  Sex: Female

DRUGS (5)
  1. DONEPEZIL HYDROCHLORIDE [Suspect]
     Indication: DEMENTIA ALZHEIMER^S TYPE
     Dosage: 5 mg
  2. BENIDIPINE HYDROCHLORIDE [Suspect]
     Dosage: 8 mg
  3. ATORVASTATIN CALCIUM [Suspect]
     Dosage: 10 mg
  4. ALFACALCIDOL [Suspect]
     Dosage: 0.5 mg
  5. RISEDRONATE SODIUM [Suspect]

REACTIONS (1)
  - Electrocardiogram QT prolonged [Recovered/Resolved]
